FAERS Safety Report 16578257 (Version 2)
Quarter: 2019Q3

REPORT INFORMATION
  Report Type: Spontaneous
  Country: IN (occurrence: IN)
  Receive Date: 20190716
  Receipt Date: 20190722
  Transmission Date: 20191004
  Serious: Yes (Hospitalization, Other)
  Sender: FDA-Public Use
  Company Number: IN-PFIZER INC-2019302037

PATIENT
  Age: 42 Year
  Sex: Male
  Weight: 70 kg

DRUGS (1)
  1. METHYLPREDNISOLONE. [Suspect]
     Active Substance: METHYLPREDNISOLONE
     Dosage: 32 MG, (QD)
     Dates: start: 20190618

REACTIONS (4)
  - Urinary tract infection [Unknown]
  - Blood creatinine increased [Unknown]
  - Pyrexia [Recovered/Resolved]
  - Blood urea increased [Unknown]

NARRATIVE: CASE EVENT DATE: 20190709
